FAERS Safety Report 9631008 (Version 1)
Quarter: 2013Q4

REPORT INFORMATION
  Report Type: Spontaneous
  Country: JP (occurrence: JP)
  Receive Date: 20131018
  Receipt Date: 20131018
  Transmission Date: 20140711
  Serious: Yes (Other)
  Sender: FDA-Public Use
  Company Number: JP-JNJFOC-20131006067

PATIENT
  Sex: 0

DRUGS (2)
  1. USTEKINUMAB [Suspect]
     Indication: QUALITY OF LIFE DECREASED
     Route: 058
  2. USTEKINUMAB [Suspect]
     Indication: PSORIASIS
     Route: 058

REACTIONS (4)
  - Computerised tomogram abnormal [Unknown]
  - Mycobacterium tuberculosis complex test positive [Unknown]
  - Hepatitis B core antibody positive [Unknown]
  - Hepatitis B surface antibody positive [Unknown]
